FAERS Safety Report 9496361 (Version 2)
Quarter: 2013Q3

REPORT INFORMATION
  Report Type: Spontaneous
  Country: JP (occurrence: JP)
  Receive Date: 20130904
  Receipt Date: 20130913
  Transmission Date: 20140515
  Serious: Yes (Other)
  Sender: FDA-Public Use
  Company Number: JP-JNJFOC-20130817360

PATIENT
  Age: 44 Year
  Sex: Male

DRUGS (2)
  1. REMICADE [Suspect]
     Indication: CROHN^S DISEASE
     Dosage: TOTAL NO: OF INFUSIONS RECEIVED: 10
     Route: 042
  2. AZANIN [Suspect]
     Indication: CROHN^S DISEASE
     Route: 048

REACTIONS (1)
  - Lymphoma [Unknown]
